FAERS Safety Report 20965868 (Version 1)
Quarter: 2022Q2

REPORT INFORMATION
  Report Type: Other
  Country: BE (occurrence: None)
  Receive Date: 20220616
  Receipt Date: 20220616
  Transmission Date: 20220721
  Serious: Yes (Other)
  Sender: FDA-Public Use
  Company Number: BE-ROCHE-3077729

PATIENT
  Age: 42 Year
  Sex: Female
  Weight: 53 kg

DRUGS (17)
  1. OCRELIZUMAB [Suspect]
     Active Substance: OCRELIZUMAB
     Indication: Relapsing-remitting multiple sclerosis
     Route: 042
     Dates: start: 20200828
  2. AMISULPRIDE [Concomitant]
     Active Substance: AMISULPRIDE
     Indication: Anxiety
     Route: 048
     Dates: start: 20200529
  3. RIVOTRIL [Concomitant]
     Active Substance: CLONAZEPAM
     Indication: Multiple sclerosis
     Dosage: 5 GTT
     Route: 048
     Dates: start: 202006
  4. CHOLECALCIFEROL [Concomitant]
     Active Substance: CHOLECALCIFEROL
     Indication: Prophylaxis
     Route: 048
     Dates: start: 20200909
  5. IBUPROFEN [Concomitant]
     Active Substance: IBUPROFEN
     Indication: Adverse event
     Route: 048
     Dates: start: 20201001
  6. FIT-O-TRANS FORTE [Concomitant]
     Indication: Multiple sclerosis
     Dosage: 1 U
     Route: 048
     Dates: start: 20210304
  7. ETILEFRINE HYDROCHLORIDE [Concomitant]
     Active Substance: ETILEFRINE HYDROCHLORIDE
     Indication: Adverse event
     Route: 048
     Dates: start: 202101
  8. VENLAFAXINE [Concomitant]
     Active Substance: VENLAFAXINE HYDROCHLORIDE
     Route: 048
     Dates: start: 202104
  9. ZOLPIDEM [Concomitant]
     Active Substance: ZOLPIDEM TARTRATE
     Indication: Insomnia
     Route: 048
     Dates: start: 202104
  10. FOLIC ACID [Concomitant]
     Active Substance: FOLIC ACID
     Indication: Prophylaxis
     Route: 048
     Dates: start: 202106
  11. BEFACT FORTE [Concomitant]
     Indication: Prophylaxis
     Dosage: 1 U (UNIT)
     Route: 048
     Dates: start: 20210304
  12. SUFENTANIL [Concomitant]
     Active Substance: SUFENTANIL
  13. PROPOFOL [Concomitant]
     Active Substance: PROPOFOL
  14. ROCURONIUM [Concomitant]
     Active Substance: ROCURONIUM BROMIDE
  15. SEVOFLURANE [Concomitant]
     Active Substance: SEVOFLURANE
  16. SUGAMMADEX [Concomitant]
     Active Substance: SUGAMMADEX
  17. ACETAMINOPHEN [Concomitant]
     Active Substance: ACETAMINOPHEN
     Indication: Adverse event
     Route: 048
     Dates: start: 20220124, end: 20220218

REACTIONS (2)
  - Facial bones fracture [Recovered/Resolved]
  - COVID-19 [Recovered/Resolved]

NARRATIVE: CASE EVENT DATE: 20220124
